FAERS Safety Report 6924145-7 (Version None)
Quarter: 2010Q3

REPORT INFORMATION
  Report Type: 
  Country: None (occurrence: None)
  Receive Date: 20100812
  Receipt Date: 20100812
  Transmission Date: 20110219
  Serious: Yes (Other)
  Sender: FDA-Public Use
  Company Number: None

PATIENT
  Sex: Male
  Weight: 70.3075 kg

DRUGS (1)
  1. COZAAR [Suspect]
     Indication: HYPERTENSION
     Dosage: 50 MG Q.D. PO
     Route: 048
     Dates: start: 20040101, end: 20100811

REACTIONS (3)
  - DERMAL CYST [None]
  - SQUAMOUS CELL CARCINOMA [None]
  - TUMOUR INVASION [None]
